FAERS Safety Report 18179356 (Version 1)
Quarter: 2020Q3

REPORT INFORMATION
  Report Type: Spontaneous
  Country: US (occurrence: US)
  Receive Date: 20200820
  Receipt Date: 20200820
  Transmission Date: 20201103
  Serious: Yes (Disabling, Other)
  Sender: FDA-Public Use
  Company Number: US-TEVA-2020-US-1817077

PATIENT
  Sex: Female

DRUGS (1)
  1. ALPRAZOLAM ACTAVIS [Suspect]
     Active Substance: ALPRAZOLAM
     Route: 065

REACTIONS (5)
  - Blindness unilateral [Unknown]
  - Manufacturing materials contamination [Unknown]
  - Drug ineffective [Unknown]
  - Product substitution issue [Unknown]
  - Disability [Unknown]
